FAERS Safety Report 4737009-4 (Version None)
Quarter: 2005Q3

REPORT INFORMATION
  Report Type: 
  Country: None (occurrence: None)
  Receive Date: 20050804
  Receipt Date: 20050719
  Transmission Date: 20060218
  Serious: Yes (Hospitalization)
  Sender: FDA-Public Use
  Company Number: DSA_26789_2005

PATIENT
  Age: 62 Year
  Sex: Female

DRUGS (3)
  1. ENALAPRIL MALEATE [Suspect]
     Indication: HYPERTENSION
     Dosage: 10 MG QD PO
     Route: 048
     Dates: start: 20010101, end: 20050621
  2. ASPIRIN [Concomitant]
  3. CORONARY HEART DISEASE PROPHYLAXIS (UNSPECIFIED) [Concomitant]

REACTIONS (3)
  - DYSPNOEA [None]
  - STRIDOR [None]
  - THROAT TIGHTNESS [None]
